FAERS Safety Report 9839262 (Version 1)
Quarter: 2014Q1

REPORT INFORMATION
  Report Type: Spontaneous
  Country: US (occurrence: None)
  Receive Date: 20140116
  Receipt Date: 20140116
  Transmission Date: 20141002
  Serious: Yes (Hospitalization)
  Sender: FDA-Public Use
  Company Number: 2013AP004719

PATIENT
  Age: 43 Year
  Sex: Female

DRUGS (2)
  1. LITHIUM CARBONATE CAPSULES [Suspect]
     Indication: BIPOLAR DISORDER
  2. VITAMIN D NOS [Suspect]
     Dosage: 8000 IU; QD

REACTIONS (4)
  - Hypercalcaemia [None]
  - Drug interaction [None]
  - Hypervitaminosis [None]
  - Antipsychotic drug level increased [None]
